FAERS Safety Report 9400128 (Version 3)
Quarter: 2013Q3

REPORT INFORMATION
  Report Type: Report from Study
  Country: US (occurrence: US)
  Receive Date: 20130715
  Receipt Date: 20130725
  Transmission Date: 20140515
  Serious: Yes (Congenital Anomaly)
  Sender: FDA-Public Use
  Company Number: US-PFIZER INC-2013204049

PATIENT
  Sex: Male

DRUGS (4)
  1. RAPAMUNE [Suspect]
     Dosage: 2 MG, 1X/DAY
     Route: 050
  2. PREDNISONE [Concomitant]
     Route: 050
  3. LEVOTHYROXINE [Concomitant]
     Route: 050
  4. MULTIVITAMINS [Concomitant]

REACTIONS (2)
  - Exposure via father [Unknown]
  - Micropenis [Unknown]
